FAERS Safety Report 20006561 (Version 2)
Quarter: 2022Q1

REPORT INFORMATION
  Report Type: Spontaneous
  Country: US (occurrence: US)
  Receive Date: 20211028
  Receipt Date: 20220114
  Transmission Date: 20220423
  Serious: No
  Sender: FDA-Public Use
  Company Number: US-SA-SAC20211022000241

PATIENT
  Age: 13 Year
  Sex: Male

DRUGS (10)
  1. DUPIXENT [Suspect]
     Active Substance: DUPILUMAB
     Indication: Dermatitis atopic
     Dosage: 600 MG, 1X
     Route: 058
     Dates: start: 20211005, end: 20211005
  2. DUPIXENT [Suspect]
     Active Substance: DUPILUMAB
     Dosage: 300 UNK, QOW
     Route: 058
     Dates: start: 20211005
  3. ALBUTEROL [Concomitant]
     Active Substance: ALBUTEROL
  4. CHILDRENS BENADRYL ALLERGY [Concomitant]
     Active Substance: DIPHENHYDRAMINE HYDROCHLORIDE
  5. PREDNISONE [Concomitant]
     Active Substance: PREDNISONE
  6. TRIAMCINOLONE [Concomitant]
     Active Substance: TRIAMCINOLONE
  7. VENTOLIN HFA [Concomitant]
     Active Substance: ALBUTEROL SULFATE
  8. HYDROXYZINE HYDROCHLORIDE [Concomitant]
     Active Substance: HYDROXYZINE HYDROCHLORIDE
  9. CETIRIZINE HYDROCHLORIDE [Concomitant]
     Active Substance: CETIRIZINE HYDROCHLORIDE
  10. TRIAMCINOLONE [Concomitant]
     Active Substance: TRIAMCINOLONE

REACTIONS (3)
  - Skin exfoliation [Unknown]
  - Product use issue [Unknown]
  - Asthma [Recovering/Resolving]

NARRATIVE: CASE EVENT DATE: 20211001
